FAERS Safety Report 5015050-4 (Version None)
Quarter: 2006Q2

REPORT INFORMATION
  Report Type: 
  Country: None (occurrence: None)
  Receive Date: 20060530
  Receipt Date: 20060519
  Transmission Date: 20061013
  Serious: Yes (Hospitalization, Disabling)
  Sender: FDA-Public Use
  Company Number: 220943

PATIENT
  Sex: Female

DRUGS (6)
  1. MABTHERA             (RITUXIMAB) [Suspect]
     Indication: NON-HODGKIN'S LYMPHOMA
     Dosage: SEE IMAGE
     Dates: start: 20040909, end: 20040916
  2. MABTHERA             (RITUXIMAB) [Suspect]
     Indication: NON-HODGKIN'S LYMPHOMA
     Dosage: SEE IMAGE
     Dates: start: 20040916
  3. ZEVALIN [Suspect]
     Indication: NON-HODGKIN'S LYMPHOMA
     Dosage: 0.4 MCI/KG, INTRAVENOUS
     Route: 042
     Dates: start: 20040916, end: 20040916
  4. ZEVALIN [Suspect]
     Indication: NON-HODGKIN'S LYMPHOMA
     Dosage: 5 MCI/KG, INTRAVENOUS
     Route: 042
     Dates: start: 20040909
  5. YTRACIS         (YTTRIUM-90) [Suspect]
     Indication: NON-HODGKIN'S LYMPHOMA
     Dates: start: 20040916, end: 20040916
  6. SURGICAL REMOVAL OF BASAL CELL CARCINOMA (SURGERY) [Suspect]

REACTIONS (2)
  - ANGIOSARCOMA [None]
  - BASAL CELL CARCINOMA [None]
